FAERS Safety Report 23877479 (Version 2)
Quarter: 2024Q2

REPORT INFORMATION
  Report Type: Report from Study
  Country: US (occurrence: US)
  Receive Date: 20240521
  Receipt Date: 20240522
  Transmission Date: 20240716
  Serious: No
  Sender: FDA-Public Use
  Company Number: US-TAKEDA-2024TUS050209

PATIENT
  Sex: Male
  Weight: 91 kg

DRUGS (1)
  1. VEDOLIZUMAB [Suspect]
     Active Substance: VEDOLIZUMAB
     Indication: Colitis ulcerative
     Dosage: 300 MILLIGRAM
     Route: 042
     Dates: start: 20240422, end: 20240514

REACTIONS (9)
  - Feeling abnormal [Unknown]
  - Panic attack [Unknown]
  - Lip swelling [Unknown]
  - Mouth swelling [Unknown]
  - Oral herpes [Unknown]
  - Dyspnoea [Unknown]
  - Dizziness [Unknown]
  - Hot flush [Unknown]
  - Rash [Unknown]
